FAERS Safety Report 22014737 (Version 1)
Quarter: 2023Q1

REPORT INFORMATION
  Report Type: Spontaneous
  Country: CN (occurrence: CN)
  Receive Date: 20230221
  Receipt Date: 20230221
  Transmission Date: 20230418
  Serious: Yes (Other)
  Sender: FDA-Public Use
  Company Number: CN-STRIDES ARCOLAB LIMITED-2023SP002428

PATIENT
  Age: 43 Year
  Sex: Female

DRUGS (6)
  1. ETOPOSIDE [Suspect]
     Active Substance: ETOPOSIDE
     Indication: Choriocarcinoma
     Dosage: UNK, AS PART OF EMA-CO, EMA AND FAEV CHEMOTHERAPY
     Route: 065
     Dates: start: 20210219
  2. METHOTREXATE [Suspect]
     Active Substance: METHOTREXATE
     Indication: Choriocarcinoma
     Dosage: UNK, AS PART OF EMA-CO AND EMA CHEMOTHERAPY
     Route: 065
     Dates: start: 20210219
  3. VINCRISTINE [Suspect]
     Active Substance: VINCRISTINE
     Indication: Choriocarcinoma
     Dosage: UNK, AS PART OF EMA-CO AND FAEV CHEMOTHERAPY
     Route: 065
     Dates: start: 20210402
  4. CYCLOPHOSPHAMIDE [Suspect]
     Active Substance: CYCLOPHOSPHAMIDE
     Indication: Choriocarcinoma
     Dosage: UNK, AS PART OF EMA-CO CHEMOTHERAPY
     Route: 065
     Dates: start: 20210402
  5. DACTINOMYCIN [Suspect]
     Active Substance: DACTINOMYCIN
     Indication: Choriocarcinoma
     Dosage: UNK, AS PART OF EMA-CO, EMA AND FAEV CHEMOTHERAPY
     Route: 065
     Dates: start: 20210219
  6. FLUOROURACIL [Suspect]
     Active Substance: FLUOROURACIL
     Indication: Choriocarcinoma
     Dosage: UNK, AS PART OF FAEV CHEMOTHERAPY
     Route: 065
     Dates: start: 20210529

REACTIONS (7)
  - Granulocytopenia [Unknown]
  - Gastrointestinal disorder [Unknown]
  - Myelosuppression [Unknown]
  - Spinal cord abscess [Unknown]
  - Drug ineffective [Unknown]
  - Infection [Unknown]
  - Off label use [Unknown]

NARRATIVE: CASE EVENT DATE: 20210101
